FAERS Safety Report 23288800 (Version 2)
Quarter: 2024Q1

REPORT INFORMATION
  Report Type: Report from Study
  Country: US (occurrence: US)
  Receive Date: 20231212
  Receipt Date: 20240108
  Transmission Date: 20240410
  Serious: No
  Sender: FDA-Public Use
  Company Number: US-SA-2023SA378083

PATIENT
  Age: 62 Year
  Sex: Female
  Weight: 74.38 kg

DRUGS (11)
  1. DUPILUMAB [Suspect]
     Active Substance: DUPILUMAB
     Indication: Dermatitis atopic
     Dosage: 600 MG, 1X
     Route: 058
     Dates: start: 20231004, end: 20231004
  2. DUPILUMAB [Suspect]
     Active Substance: DUPILUMAB
     Dosage: 300 MG, QOW
     Route: 058
     Dates: start: 202310
  3. CYANOCOBALAMIN [Concomitant]
     Active Substance: CYANOCOBALAMIN
  4. VITAMIN D3 [Concomitant]
     Active Substance: CHOLECALCIFEROL
  5. LEVOTHYROXINE SODIUM [Concomitant]
     Active Substance: LEVOTHYROXINE SODIUM
  6. LORAZEPAM [Concomitant]
     Active Substance: LORAZEPAM
  7. TOPIRAMATE [Concomitant]
     Active Substance: TOPIRAMATE
  8. ESTRADIOL [Concomitant]
     Active Substance: ESTRADIOL
  9. LASIX [Concomitant]
     Active Substance: FUROSEMIDE
  10. AMLODIPINE BESYLATE [Concomitant]
     Active Substance: AMLODIPINE BESYLATE
  11. LEXAPRO [Concomitant]
     Active Substance: ESCITALOPRAM OXALATE

REACTIONS (4)
  - Panic attack [Recovered/Resolved]
  - Injection site urticaria [Not Recovered/Not Resolved]
  - Weight increased [Not Recovered/Not Resolved]
  - Product preparation error [Unknown]

NARRATIVE: CASE EVENT DATE: 20230101
